FAERS Safety Report 15341307 (Version 2)
Quarter: 2019Q1

REPORT INFORMATION
  Report Type: Report from Study
  Country: None (occurrence: US)
  Receive Date: 20180831
  Receipt Date: 20190102
  Transmission Date: 20190417
  Serious: Yes (Hospitalization, Other)
  Sender: FDA-Public Use
  Company Number: US-ABBVIE-18K-163-2432529-00

PATIENT
  Age: 75 Year
  Sex: Female
  Weight: 118.04 kg

DRUGS (1)
  1. HUMIRA [Suspect]
     Active Substance: ADALIMUMAB
     Indication: PSORIATIC ARTHROPATHY
     Route: 058
     Dates: start: 2016, end: 201805

REACTIONS (3)
  - Sciatic nerve neuropathy [Recovering/Resolving]
  - Gait disturbance [Recovering/Resolving]
  - Spinal instability [Recovered/Resolved]

NARRATIVE: CASE EVENT DATE: 201801
